FAERS Safety Report 19996662 (Version 6)
Quarter: 2024Q4

REPORT INFORMATION
  Report Type: Spontaneous
  Country: IN (occurrence: IN)
  Receive Date: 20211025
  Receipt Date: 20241219
  Transmission Date: 20250115
  Serious: Yes (Hospitalization, Other)
  Sender: PFIZER
  Company Number: IN-PFIZER INC-2018048440

PATIENT
  Age: 60 Year
  Sex: Male

DRUGS (4)
  1. SUTENT [Suspect]
     Active Substance: SUNITINIB MALATE
     Indication: Metastatic renal cell carcinoma
     Dosage: 50 MG, 1X/DAY
     Route: 048
     Dates: start: 20131019
  2. SUTENT [Suspect]
     Active Substance: SUNITINIB MALATE
     Dosage: 37.5 MG, CYCLIC (OD ALTERNATE WITH 25 MG FOR 2 WEEKS ON 1 WEEK OFF)
     Route: 048
  3. SUTENT [Suspect]
     Active Substance: SUNITINIB MALATE
     Dosage: UNK
     Dates: end: 20230301
  4. SUTENT [Suspect]
     Active Substance: SUNITINIB MALATE
     Dosage: UNK
     Dates: start: 20131021

REACTIONS (6)
  - Pancreas infection [Unknown]
  - Pancreatitis acute [Unknown]
  - COVID-19 [Recovered/Resolved]
  - Gastric infection [Unknown]
  - Blood glucose abnormal [Unknown]
  - Malaise [Unknown]
